FAERS Safety Report 23272438 (Version 1)
Quarter: 2023Q4

REPORT INFORMATION
  Report Type: Spontaneous
  Country: US (occurrence: US)
  Receive Date: 20231207
  Receipt Date: 20231207
  Transmission Date: 20240109
  Serious: Yes (Other)
  Sender: FDA-Public Use
  Company Number: US-SUN PHARMACEUTICAL INDUSTRIES LTD-2023R1-421747

PATIENT
  Age: 46 Year
  Sex: Male

DRUGS (2)
  1. ITRACONAZOLE [Interacting]
     Active Substance: ITRACONAZOLE
     Indication: Histoplasmosis
     Dosage: UNK
     Route: 065
  2. TRIAMCINOLONE [Interacting]
     Active Substance: TRIAMCINOLONE
     Indication: Arthralgia
     Dosage: 40 MILLIGRAM
     Route: 014

REACTIONS (2)
  - Adrenal insufficiency [Unknown]
  - Drug interaction [Unknown]
